FAERS Safety Report 8999419 (Version 1)
Quarter: 2013Q1

REPORT INFORMATION
  Report Type: Spontaneous
  Country: US (occurrence: US)
  Receive Date: 20130103
  Receipt Date: 20130103
  Transmission Date: 20140127
  Serious: No
  Sender: FDA-Public Use
  Company Number: US-ASTRAZENECA-2012SE95718

PATIENT
  Age: 52 Year
  Sex: Male
  Weight: 77.1 kg

DRUGS (8)
  1. CRESTOR [Suspect]
     Route: 048
     Dates: start: 2011
  2. ATENOLOL [Suspect]
     Route: 048
     Dates: start: 201204
  3. SEROQUEL XR [Suspect]
     Indication: SLEEP DISORDER
     Route: 048
     Dates: start: 201209, end: 201212
  4. SEROQUEL XR [Suspect]
     Indication: DEPRESSION
     Route: 048
     Dates: start: 201209, end: 201212
  5. PLAVIX [Concomitant]
     Dates: start: 2011
  6. NORVASC [Concomitant]
     Dates: start: 2011
  7. BABY ASPIRIN [Concomitant]
     Dates: start: 2011
  8. UNSPECIFIED INGREDIENT [Concomitant]

REACTIONS (2)
  - Somnolence [Recovered/Resolved]
  - Intentional drug misuse [Recovered/Resolved]
